FAERS Safety Report 4462554-9 (Version None)
Quarter: 2004Q3

REPORT INFORMATION
  Report Type: 
  Country: None (occurrence: None)
  Receive Date: 20040924
  Receipt Date: 20040914
  Transmission Date: 20050211
  Serious: Yes (Life-Threatening)
  Sender: FDA-Public Use
  Company Number: 04H-150-0273515-00

PATIENT
  Age: 36 Year
  Sex: Female

DRUGS (2)
  1. SODIUM CHLORIDE [Suspect]
     Indication: OLIGOHYDRAMNIOS
     Dosage: 500 M1, I.U.
     Route: 015
  2. FUROSEMIDE [Concomitant]

REACTIONS (8)
  - BRADYCARDIA [None]
  - CARDIOMEGALY [None]
  - CYANOSIS [None]
  - DRUG EXPOSURE DURING PREGNANCY [None]
  - OXYGEN SATURATION IMMEASURABLE [None]
  - PULMONARY OEDEMA [None]
  - UTERINE CONTRACTIONS ABNORMAL [None]
  - VACUUM EXTRACTOR DELIVERY [None]
